FAERS Safety Report 9848048 (Version 1)
Quarter: 2014Q1

REPORT INFORMATION
  Report Type: Spontaneous
  Country: BR (occurrence: BR)
  Receive Date: 20140128
  Receipt Date: 20140128
  Transmission Date: 20141002
  Serious: Yes (Other)
  Sender: FDA-Public Use
  Company Number: BR-VERTEX PHARMACEUTICALS INC-2014-000388

PATIENT
  Sex: Male

DRUGS (3)
  1. INCIVO [Suspect]
     Indication: HEPATITIS C
     Route: 065
     Dates: start: 2012, end: 2012
  2. INTERFERON [Concomitant]
     Indication: HEPATITIS C
     Route: 065
     Dates: start: 2012
  3. RIBAVIRIN [Concomitant]
     Indication: HEPATITIS C
     Route: 065
     Dates: start: 2012

REACTIONS (3)
  - Peyronie^s disease [Unknown]
  - Fluid retention [Unknown]
  - Rash [Recovered/Resolved]
